FAERS Safety Report 8171356-1 (Version None)
Quarter: 2012Q1

REPORT INFORMATION
  Report Type: 
  Country: None (occurrence: None)
  Receive Date: 20120228
  Receipt Date: 20120221
  Transmission Date: 20120608
  Serious: Yes (Disabling)
  Sender: FDA-Public Use
  Company Number: JP-PFIZER INC-2011313147

PATIENT
  Age: 73 Year
  Sex: Female
  Weight: 30.2 kg

DRUGS (8)
  1. CARBOPLATIN [Suspect]
     Dosage: UNK
     Dates: start: 20110308
  2. ZOSYN [Concomitant]
  3. MICAFUNGIN SODIUM [Concomitant]
  4. ZYVOX [Suspect]
     Dosage: 600 MG, 2X/DAY
     Route: 041
     Dates: start: 20110224, end: 20110301
  5. CEFMETAZOLE SODIUM [Concomitant]
  6. TAXOL [Suspect]
     Indication: NEOPLASM MALIGNANT
     Dosage: UNK
     Dates: start: 20110308
  7. AMPICILLIN [Concomitant]
  8. AMIKACIN SULFATE [Concomitant]

REACTIONS (1)
  - LEUKOENCEPHALOPATHY [None]
